FAERS Safety Report 4975040-4 (Version None)
Quarter: 2006Q2

REPORT INFORMATION
  Report Type: 
  Country: None (occurrence: None)
  Receive Date: 20060414
  Receipt Date: 20060414
  Transmission Date: 20061013
  Serious: Yes (Hospitalization)
  Sender: FDA-Public Use
  Company Number: None

PATIENT
  Age: 77 Year
  Sex: Male
  Weight: 88.905 kg

DRUGS (1)
  1. CLOZAPINE [Suspect]
     Indication: SCHIZOPHRENIA
     Dosage: 300 MG  DAILY   PO
     Route: 048
     Dates: start: 19950301, end: 20060413

REACTIONS (2)
  - ILEUS [None]
  - IMPAIRED GASTRIC EMPTYING [None]
